FAERS Safety Report 5712412-4 (Version None)
Quarter: 2008Q2

REPORT INFORMATION
  Report Type: 
  Country: None (occurrence: None)
  Receive Date: 20080422
  Receipt Date: 20080411
  Transmission Date: 20081010
  Serious: Yes (Hospitalization)
  Sender: FDA-Public Use
  Company Number: PHHO2008US04900

PATIENT
  Age: 72 Year
  Sex: Male
  Weight: 89 kg

DRUGS (4)
  1. NATEGLINIDE [Suspect]
     Indication: GLUCOSE TOLERANCE IMPAIRED
     Dosage: LEVEL 1
     Route: 048
     Dates: start: 20021209
  2. NATEGLINIDE [Suspect]
     Dosage: LEVEL 2
     Route: 048
  3. VALSARTAN [Suspect]
     Indication: CARDIOVASCULAR DISORDER
     Dosage: LEVEL 1
     Route: 048
     Dates: start: 20021209
  4. VALSARTAN [Suspect]
     Dosage: LEVEL 2
     Route: 048

REACTIONS (3)
  - ACUTE CORONARY SYNDROME [None]
  - CHEST PAIN [None]
  - DYSPNOEA [None]
